FAERS Safety Report 24217458 (Version 4)
Quarter: 2024Q4

REPORT INFORMATION
  Report Type: Spontaneous
  Country: US (occurrence: US)
  Receive Date: 20240816
  Receipt Date: 20241114
  Transmission Date: 20250115
  Serious: Yes (Hospitalization)
  Sender: ROCHE
  Company Number: US-ROCHE-10000056201

PATIENT
  Age: 72 Year
  Sex: Male

DRUGS (11)
  1. ALECENSA [Suspect]
     Active Substance: ALECTINIB HYDROCHLORIDE
     Indication: Lung neoplasm malignant
     Route: 048
     Dates: start: 20240422
  2. ALECENSA [Suspect]
     Active Substance: ALECTINIB HYDROCHLORIDE
     Indication: Non-small cell lung cancer
  3. ASPIRIN [Concomitant]
     Active Substance: ASPIRIN
  4. CARVEDILOL [Concomitant]
     Active Substance: CARVEDILOL
  5. multivitamin adult [Concomitant]
  6. TESTOSTERONE [Concomitant]
     Active Substance: TESTOSTERONE
  7. VITAMIN C [Concomitant]
     Active Substance: ASCORBIC ACID
  8. ATORVASTATIN [Concomitant]
     Active Substance: ATORVASTATIN
  9. ELIQUIS [Concomitant]
     Active Substance: APIXABAN
  10. AMIODARONE [Concomitant]
     Active Substance: AMIODARONE
  11. FUROSEMIDE [Concomitant]
     Active Substance: FUROSEMIDE

REACTIONS (2)
  - Nephrolithiasis [Unknown]
  - Atrial fibrillation [Unknown]

NARRATIVE: CASE EVENT DATE: 20241101
